FAERS Safety Report 8492387-8 (Version None)
Quarter: 2012Q3

REPORT INFORMATION
  Report Type: 
  Country: None (occurrence: None)
  Receive Date: 20120706
  Receipt Date: 20120625
  Transmission Date: 20120928
  Serious: Yes (Hospitalization, Disabling, Other)
  Sender: FDA-Public Use
  Company Number: DE-ROCHE-1076386

PATIENT
  Age: 87 Year
  Sex: Female
  Weight: 84 kg

DRUGS (12)
  1. SIMVASTATIN [Concomitant]
  2. CARVEDILOL [Concomitant]
  3. PREDNISONE [Concomitant]
     Indication: NON-HODGKIN'S LYMPHOMA
     Route: 048
  4. CALCICARE-D3 [Concomitant]
  5. PANTOPRAZOLE [Concomitant]
  6. MABTHERA [Suspect]
     Dates: start: 20111027, end: 20120215
  7. METFORMIN HCL [Concomitant]
  8. ASPIRIN [Concomitant]
  9. NOVONORM [Concomitant]
  10. RAMIPRIL [Concomitant]
     Dosage: 5 PLUS
  11. MABTHERA [Suspect]
     Indication: NON-HODGKIN'S LYMPHOMA
     Dosage: DOSE: 700, FREQ: 8WEEKS
     Route: 042
     Dates: start: 20100301
  12. PREDNISOLONE [Concomitant]
     Dosage: STAT DOSE
     Dates: start: 20120423

REACTIONS (4)
  - PULMONARY FIBROSIS [None]
  - PLEURAL FIBROSIS [None]
  - DYSPNOEA [None]
  - ALVEOLITIS [None]
